FAERS Safety Report 4428854-3 (Version None)
Quarter: 2004Q3

REPORT INFORMATION
  Report Type: 
  Country: None (occurrence: None)
  Receive Date: 20040816
  Receipt Date: 20040803
  Transmission Date: 20050211
  Serious: Yes (Hospitalization, Other)
  Sender: FDA-Public Use
  Company Number: 2004226993US

PATIENT
  Sex: Female

DRUGS (1)
  1. BEXTRA [Suspect]

REACTIONS (1)
  - HYPERSENSITIVITY [None]
